FAERS Safety Report 8351882-2 (Version None)
Quarter: 2012Q2

REPORT INFORMATION
  Report Type: 
  Country: None (occurrence: None)
  Receive Date: 20120510
  Receipt Date: 20120510
  Transmission Date: 20120825
  Serious: Yes (Hospitalization)
  Sender: FDA-Public Use
  Company Number: None

PATIENT
  Sex: Male
  Weight: 102.7 kg

DRUGS (1)
  1. INTRON A [Suspect]
     Dosage: 748 MILLION IU
     Dates: end: 20120302

REACTIONS (7)
  - HYPOXIA [None]
  - CHOLELITHIASIS [None]
  - AXILLARY MASS [None]
  - PROTEINURIA [None]
  - HEADACHE [None]
  - RETCHING [None]
  - PANCREATITIS [None]
